APPROVED DRUG PRODUCT: CLOTRIMAZOLE
Active Ingredient: CLOTRIMAZOLE
Strength: 1%
Dosage Form/Route: SOLUTION;TOPICAL
Application: A209815 | Product #001 | TE Code: AT
Applicant: NOVITIUM PHARMA LLC
Approved: Feb 14, 2019 | RLD: No | RS: No | Type: RX